FAERS Safety Report 7605276-5 (Version None)
Quarter: 2011Q3

REPORT INFORMATION
  Report Type: 
  Country: None (occurrence: None)
  Receive Date: 20110705
  Receipt Date: 20110620
  Transmission Date: 20111222
  Serious: Yes (Other)
  Sender: FDA-Public Use
  Company Number: 2010-1583

PATIENT
  Age: 4 Year
  Sex: Male
  Weight: 13 kg

DRUGS (3)
  1. INCRELEX [Suspect]
     Indication: INSULIN-LIKE GROWTH FACTOR DECREASED
     Dosage: SEE IMAGE
     Route: 058
     Dates: start: 20081010, end: 20081214
  2. INCRELEX [Suspect]
     Indication: INSULIN-LIKE GROWTH FACTOR DECREASED
     Dosage: SEE IMAGE
     Route: 058
     Dates: start: 20081215
  3. INCRELEX [Suspect]
     Indication: INSULIN-LIKE GROWTH FACTOR DECREASED
     Dosage: SEE IMAGE
     Route: 058
     Dates: start: 20080130

REACTIONS (2)
  - CARDIAC VENTRICULAR DISORDER [None]
  - CYANOSIS [None]
